FAERS Safety Report 12526524 (Version 3)
Quarter: 2017Q3

REPORT INFORMATION
  Report Type: Report from Study
  Country: US (occurrence: US)
  Receive Date: 20160705
  Receipt Date: 20170721
  Transmission Date: 20171127
  Serious: Yes (Hospitalization, Other)
  Sender: FDA-Public Use
  Company Number: US-AMGEN-USASL2016085827

PATIENT
  Age: 79 Year
  Sex: Female

DRUGS (1)
  1. ENBREL [Suspect]
     Active Substance: ETANERCEPT
     Indication: PSORIASIS
     Dosage: 50 MG, QWK
     Route: 065
     Dates: start: 20160531

REACTIONS (9)
  - Cardiac failure congestive [Unknown]
  - Bronchitis [Unknown]
  - Fall [Unknown]
  - Pneumonia [Unknown]
  - Urinary tract infection [Unknown]
  - Mobility decreased [Not Recovered/Not Resolved]
  - Muscle strain [Not Recovered/Not Resolved]
  - Contusion [Unknown]
  - Bone contusion [Not Recovered/Not Resolved]

NARRATIVE: CASE EVENT DATE: 2016
